FAERS Safety Report 16934106 (Version 1)
Quarter: 2019Q4

REPORT INFORMATION
  Report Type: Spontaneous
  Country: US (occurrence: US)
  Receive Date: 20191018
  Receipt Date: 20191018
  Transmission Date: 20200122
  Serious: No
  Sender: FDA-Public Use
  Company Number: US-009507513-1910USA004338

PATIENT

DRUGS (1)
  1. FOSAMAX [Suspect]
     Active Substance: ALENDRONATE SODIUM
     Dosage: ONCE A WEEK
     Route: 048

REACTIONS (3)
  - Inappropriate schedule of product administration [Unknown]
  - Overdose [Unknown]
  - No adverse event [Unknown]
